FAERS Safety Report 6634678-9 (Version None)
Quarter: 2010Q1

REPORT INFORMATION
  Report Type: 
  Country: None (occurrence: None)
  Receive Date: 20100225
  Receipt Date: 20090105
  Transmission Date: 20100710
  Serious: Yes (Other)
  Sender: FDA-Public Use
  Company Number: 606548

PATIENT
  Age: 15 Year
  Sex: Male
  Weight: 70 kg

DRUGS (1)
  1. ACCUTANE [Suspect]
     Indication: ACNE
     Dosage: 30 MG 2 PER DAY ORAL
     Route: 048
     Dates: start: 20080326, end: 20080826

REACTIONS (3)
  - AGGRESSION [None]
  - PHYSICAL ASSAULT [None]
  - THEFT [None]
